FAERS Safety Report 12231623 (Version 2)
Quarter: 2016Q2

REPORT INFORMATION
  Report Type: Spontaneous
  Country: US (occurrence: US)
  Receive Date: 20160401
  Receipt Date: 20160503
  Transmission Date: 20160815
  Serious: No
  Sender: FDA-Public Use
  Company Number: US-B.I. PHARMACEUTICALS,INC./RIDGEFIELD-2016-BI-18166BP

PATIENT
  Age: 61 Year
  Sex: Female
  Weight: 58.97 kg

DRUGS (2)
  1. COMBIVENT [Suspect]
     Active Substance: ALBUTEROL SULFATE\IPRATROPIUM BROMIDE
     Indication: CHRONIC OBSTRUCTIVE PULMONARY DISEASE
     Dosage: 4 ANZ
     Route: 055
     Dates: start: 201601, end: 201602
  2. COMBIVENT [Suspect]
     Active Substance: ALBUTEROL SULFATE\IPRATROPIUM BROMIDE
     Dosage: 8 ANZ
     Route: 055
     Dates: start: 201602

REACTIONS (2)
  - Product quality issue [Unknown]
  - Intentional overdose [Not Recovered/Not Resolved]

NARRATIVE: CASE EVENT DATE: 201602
